FAERS Safety Report 17139015 (Version 1)
Quarter: 2019Q4

REPORT INFORMATION
  Report Type: Spontaneous
  Country: US (occurrence: US)
  Receive Date: 20191211
  Receipt Date: 20191211
  Transmission Date: 20200122
  Serious: No
  Sender: FDA-Public Use
  Company Number: US-GLAXOSMITHKLINE-US2019AMR222680

PATIENT
  Sex: Male

DRUGS (2)
  1. PREDNISONE. [Concomitant]
     Active Substance: PREDNISONE
     Indication: PRODUCT USED FOR UNKNOWN INDICATION
     Route: 065
  2. NUCALA [Suspect]
     Active Substance: MEPOLIZUMAB
     Indication: PRODUCT USED FOR UNKNOWN INDICATION
     Dosage: ONCE EVERY 4 WEEKS
     Route: 065

REACTIONS (6)
  - Spinal operation [Unknown]
  - Product dose omission [Unknown]
  - Spinal laminectomy [Unknown]
  - Nerve compression [Unknown]
  - Neck surgery [Unknown]
  - Exostosis [Unknown]

NARRATIVE: CASE EVENT DATE: 201906
